FAERS Safety Report 10633783 (Version 2)
Quarter: 2015Q2

REPORT INFORMATION
  Report Type: Report from Study
  Country: JP (occurrence: JP)
  Receive Date: 20141205
  Receipt Date: 20150624
  Transmission Date: 20150821
  Serious: Yes (Hospitalization, Other)
  Sender: FDA-Public Use
  Company Number: JP-AMGEN-JPNCT2014094356

PATIENT
  Age: 59 Year
  Sex: Male
  Weight: 65 kg

DRUGS (26)
  1. ZOVIRAX [Concomitant]
     Active Substance: ACYCLOVIR
     Dosage: 200 MG, QD
     Route: 048
  2. URIEF [Concomitant]
     Active Substance: SILODOSIN
     Dosage: 8 MG, QD
     Route: 048
  3. OXYCONTIN [Concomitant]
     Active Substance: OXYCODONE HYDROCHLORIDE
     Dosage: 10 MG, QD
     Route: 048
     Dates: start: 20140117, end: 20140313
  4. NEXIUM [Concomitant]
     Active Substance: ESOMEPRAZOLE MAGNESIUM
     Dosage: 20 MG, QD
     Route: 048
  5. MEROPEN                            /01250501/ [Concomitant]
     Active Substance: MEROPENEM
     Dosage: 1 G, QD
     Route: 042
     Dates: start: 20140426, end: 20140512
  6. ZOSYN [Concomitant]
     Active Substance: PIPERACILLIN SODIUM\TAZOBACTAM SODIUM
     Dosage: 6.75 G, QD
     Route: 042
     Dates: start: 20140219, end: 20140224
  7. FEBURIC [Concomitant]
     Active Substance: FEBUXOSTAT
     Dosage: 20 MG, QD
     Route: 048
     Dates: start: 20140207, end: 20140408
  8. VELCADE [Concomitant]
     Active Substance: BORTEZOMIB
     Dosage: UNK
     Route: 065
     Dates: start: 20140207, end: 20140729
  9. SEROQUEL [Concomitant]
     Active Substance: QUETIAPINE FUMARATE
     Dosage: 50 MG, QD
     Route: 048
  10. BAYASPIRIN [Concomitant]
     Active Substance: ASPIRIN
     Dosage: 100 MG, QD
     Route: 048
     Dates: start: 20140206
  11. ALLEGRA [Concomitant]
     Active Substance: FEXOFENADINE HYDROCHLORIDE
     Dosage: 120 MG, QD
     Route: 048
     Dates: start: 20140503, end: 20140512
  12. LASIX [Concomitant]
     Active Substance: FUROSEMIDE
     Dosage: 20 MG, QD
     Route: 042
     Dates: start: 20140211, end: 20140707
  13. THALED [Concomitant]
     Active Substance: THALIDOMIDE
     Dosage: UNK
     Route: 065
     Dates: start: 20140207, end: 20140327
  14. ALFAROL [Concomitant]
     Active Substance: ALFACALCIDOL
     Dosage: 0.5 MUG, QD
     Route: 048
     Dates: start: 20130730
  15. DENOSUMAB [Suspect]
     Active Substance: DENOSUMAB
     Indication: PLASMA CELL MYELOMA
     Dosage: 120 MG, UNK
     Route: 058
     Dates: start: 20130730
  16. LENADEX [Concomitant]
     Active Substance: DEXAMETHASONE ACETATE
     Dosage: UNK
     Route: 065
     Dates: start: 20140207
  17. DECADRON [Concomitant]
     Active Substance: DEXAMETHASONE
     Dosage: UNK
     Route: 065
     Dates: start: 20140630, end: 20140701
  18. ROHYPNOL [Concomitant]
     Active Substance: FLUNITRAZEPAM
     Dosage: 1 MG, QD
     Route: 048
  19. ENDOXAN                            /00021101/ [Concomitant]
     Active Substance: CYCLOPHOSPHAMIDE
     Dosage: UNK
     Route: 065
     Dates: start: 20140404
  20. DOXORUBICIN [Concomitant]
     Active Substance: DOXORUBICIN
     Dosage: UNK
     Route: 065
     Dates: start: 20140702, end: 20140705
  21. FUNGUARD [Concomitant]
     Active Substance: MICAFUNGIN SODIUM
     Dosage: 150 MG, QD
     Route: 042
     Dates: start: 20140430, end: 20140512
  22. CALCIUM LACTATE [Concomitant]
     Active Substance: CALCIUM LACTATE
     Dosage: 3 G, QD
     Route: 048
     Dates: start: 20130730
  23. VFEND [Concomitant]
     Active Substance: VORICONAZOLE
     Dosage: 300 MG, QD
     Route: 048
     Dates: start: 20140204
  24. ZYVOX [Concomitant]
     Active Substance: LINEZOLID
     Dosage: 1200 MG, QD
     Route: 042
     Dates: start: 20140425, end: 20140508
  25. ITRIZOLE [Concomitant]
     Active Substance: ITRACONAZOLE
     Dosage: 30 ML, QD
     Route: 048
     Dates: start: 20140227, end: 20140430
  26. CIPROXAN                           /00697202/ [Concomitant]
     Active Substance: CIPROFLOXACIN
     Dosage: 1200 MG, QD
     Route: 048
     Dates: start: 20140228, end: 20140403

REACTIONS (6)
  - Atrial fibrillation [Not Recovered/Not Resolved]
  - Eye pain [Recovering/Resolving]
  - Hypocalcaemia [Recovered/Resolved]
  - Febrile neutropenia [Recovering/Resolving]
  - Urinary retention [Recovering/Resolving]
  - Peripheral sensory neuropathy [Recovering/Resolving]

NARRATIVE: CASE EVENT DATE: 20131108
